FAERS Safety Report 18214360 (Version 1)
Quarter: 2020Q3

REPORT INFORMATION
  Report Type: Spontaneous
  Country: US (occurrence: US)
  Receive Date: 20200831
  Receipt Date: 20200831
  Transmission Date: 20201103
  Serious: No
  Sender: FDA-Public Use
  Company Number: US-BAUSCH-BL-2020-024589

PATIENT
  Age: 7 Year
  Sex: Female

DRUGS (1)
  1. NEOMYCIN AND POLYMYXIN B SULFATES AND HYDROCORTISONE [Suspect]
     Active Substance: HYDROCORTISONE\NEOMYCIN SULFATE\POLYMYXIN B SULFATE
     Indication: EAR INFECTION
     Route: 065
     Dates: start: 20200805, end: 20200813

REACTIONS (4)
  - Mononucleosis heterophile test positive [Unknown]
  - Eye swelling [Recovering/Resolving]
  - Rash [Recovering/Resolving]
  - Pyrexia [Recovered/Resolved]

NARRATIVE: CASE EVENT DATE: 202008
